FAERS Safety Report 5636337-8 (Version None)
Quarter: 2008Q1

REPORT INFORMATION
  Report Type: 
  Country: None (occurrence: None)
  Receive Date: 20080220
  Receipt Date: 20080220
  Transmission Date: 20080703
  Serious: No
  Sender: FDA-Public Use
  Company Number: None

PATIENT
  Sex: Female
  Weight: 68.9467 kg

DRUGS (2)
  1. TRI-SPRINTEC [Suspect]
     Dosage: (0.18MG 0.035)(0.215MG 0.035MG) (0.25MG 0.035) ONE DAILY BY MOUTH
     Route: 048
  2. TRI-NESSA 7/07, 8/07, 9/07 [Suspect]
     Dosage: (0.18MG 0.035)(0.215MG 0.035MG) (0.25MG 0.035) ONE DAILY BY MOUTH
     Route: 048

REACTIONS (2)
  - METRORRHAGIA [None]
  - THERAPEUTIC RESPONSE UNEXPECTED WITH DRUG SUBSTITUTION [None]
